FAERS Safety Report 9551608 (Version 3)
Quarter: 2013Q4

REPORT INFORMATION
  Report Type: Report from Study
  Country: US (occurrence: US)
  Receive Date: 20130925
  Receipt Date: 20131231
  Transmission Date: 20140711
  Serious: Yes (Hospitalization, Other)
  Sender: FDA-Public Use
  Company Number: US-ROCHE-1279176

PATIENT
  Age: 75 Year
  Sex: Female
  Weight: 60.2 kg

DRUGS (4)
  1. BEVACIZUMAB [Suspect]
     Indication: FALLOPIAN TUBE CANCER
     Dosage: 15MG/KG IV OVER 30-90 MINS ON DAY 1.? DATE OF LAST DOSE PRIOR TO SAE 19/JUL/2013
     Route: 042
     Dates: start: 20130517
  2. CARBOPLATIN [Suspect]
     Indication: FALLOPIAN TUBE CANCER
     Dosage: AUC = 6 IV OVER 30 MINS ON DAY 1.?DATE OF LAST DOSE PRIOR TO SAE 19/JUL/2013
     Route: 042
  3. PACLITAXEL [Suspect]
     Indication: FALLOPIAN TUBE CANCER
     Dosage: 80 MG/M2 IV OVER 1 HR ON DAYS 1, 8, 15.?DATE OF LAST DOSE PRIOR TO SAE 26/JUL/2013
     Route: 042
  4. VELIPARIB [Suspect]
     Indication: FALLOPIAN TUBE CANCER
     Dosage: 250 MG PO BID ON DAYS -2-5?DATE OF LAST DOSE PRIOR TO SAE 23/JUL/2013
     Route: 048

REACTIONS (4)
  - Muscular weakness [Recovered/Resolved]
  - Dehydration [Recovered/Resolved]
  - Hypokalaemia [Recovered/Resolved]
  - Diarrhoea [Recovered/Resolved]
